FAERS Safety Report 8758833 (Version 2)
Quarter: 2012Q4

REPORT INFORMATION
  Report Type: 
  Country: DE (occurrence: DE)
  Receive Date: 20120829
  Receipt Date: 20120829
  Transmission Date: 20130627
  Serious: Yes (Hospitalization, Disabling, Other)
  Sender: FDA-Public Use
  Company Number: PHHY2012DE059432

PATIENT
  Age: 74 Year
  Sex: Male

DRUGS (5)
  1. TASIGNA [Suspect]
     Indication: CHRONIC MYELOID LEUKAEMIA
     Dosage: 600 mg, QD
     Route: 048
  2. LITALIR [Concomitant]
     Indication: CHRONIC MYELOID LEUKAEMIA
  3. TOREM [Concomitant]
     Indication: CARDIAC FAILURE
  4. DIOVAN [Concomitant]
     Indication: CARDIAC FAILURE
  5. ALLOPURINOL [Concomitant]
     Indication: HYPERURICAEMIA

REACTIONS (3)
  - Microangiopathy [Recovering/Resolving]
  - Raynaud^s phenomenon [Recovering/Resolving]
  - Necrosis [Recovering/Resolving]
